FAERS Safety Report 4533963-4 (Version None)
Quarter: 2004Q4

REPORT INFORMATION
  Report Type: 
  Country: None (occurrence: None)
  Receive Date: 20041221
  Receipt Date: 20041221
  Transmission Date: 20050328
  Serious: Yes (Other)
  Sender: FDA-Public Use
  Company Number: None

PATIENT
  Age: 61 Year
  Sex: Male
  Weight: 91.6 kg

DRUGS (14)
  1. ATORVASTATIN [Suspect]
  2. PROPOXYPHENE N 100/APAP [Concomitant]
  3. NIACIN (NIASPAN-KOS) [Concomitant]
  4. CETIRIZINE HCL [Concomitant]
  5. FLUNISOLIDE [Concomitant]
  6. FORMOTEROL FUMARATE [Concomitant]
  7. RABEPRAZOLE SODIUM [Concomitant]
  8. RAMIPRIL [Concomitant]
  9. LORATADINE [Concomitant]
  10. ALBUTEROL 90/IPTRATROP [Concomitant]
  11. ATENOLOL [Concomitant]
  12. GABAPENTIN [Concomitant]
  13. MULTI-VITAMIN [Concomitant]
  14. NITROGLYCERIN [Concomitant]

REACTIONS (1)
  - MYALGIA [None]
